FAERS Safety Report 5651118-7 (Version None)
Quarter: 2008Q1

REPORT INFORMATION
  Report Type: 
  Country: None (occurrence: None)
  Receive Date: 20080305
  Receipt Date: 20080229
  Transmission Date: 20080703
  Serious: Yes (Hospitalization)
  Sender: FDA-Public Use
  Company Number: FR-GENENTECH-256879

PATIENT
  Sex: Male

DRUGS (9)
  1. EFALIZUMAB [Suspect]
     Indication: PSORIASIS
     Dosage: 0.15 ML, 1/WEEK
     Route: 058
     Dates: start: 20061001, end: 20080201
  2. GLIBOMET [Concomitant]
     Indication: DIABETES MELLITUS
     Dosage: 2 TABLET, TID
     Route: 048
     Dates: start: 20050101
  3. FUROSEMIDE [Concomitant]
     Indication: HYPERTENSION
     Dosage: UNK, UNK
     Route: 048
     Dates: start: 19940401
  4. PRAVASTATIN [Concomitant]
     Indication: HYPERTRIGLYCERIDAEMIA
     Dosage: UNK, UNK
     Dates: start: 19940401
  5. PRAVASTATIN [Concomitant]
     Indication: THROMBOSIS
  6. INSULIN GLARGINE [Concomitant]
     Indication: DIABETES MELLITUS
     Dosage: UNK, QD
     Dates: start: 20050101
  7. PLAVIX [Concomitant]
     Indication: PROPHYLAXIS
     Dosage: UNK, QD
     Route: 048
     Dates: start: 19940401
  8. VERAPAMIL HYDROCHLORIDE [Concomitant]
     Indication: PROPHYLAXIS
     Dosage: UNK, UNK
     Route: 048
     Dates: start: 19940401
  9. RAMIPRIL [Concomitant]
     Indication: HYPERTENSION
     Dosage: 10 MG, QD
     Route: 048
     Dates: start: 19940401

REACTIONS (2)
  - ANGINA PECTORIS [None]
  - PULMONARY OEDEMA [None]
